FAERS Safety Report 19943125 (Version 1)
Quarter: 2021Q4

REPORT INFORMATION
  Report Type: Spontaneous
  Country: US (occurrence: US)
  Receive Date: 20211011
  Receipt Date: 20211011
  Transmission Date: 20220303
  Serious: Yes (Hospitalization)
  Sender: FDA-Public Use
  Company Number: None

PATIENT
  Age: 71 Year
  Sex: Male

DRUGS (21)
  1. XELJANZ [Suspect]
     Active Substance: TOFACITINIB CITRATE
     Indication: Rheumatoid arthritis
     Route: 048
     Dates: start: 20171219
  2. ACETAMINOPHEN [Concomitant]
     Active Substance: ACETAMINOPHEN
  3. VITAMIN B COMPLEX [Concomitant]
     Active Substance: CYANOCOBALAMIN\DEXPANTHENOL\NIACINAMIDE\PYRIDOXINE HYDROCHLORIDE\RIBOFLAVIN 5^-PHOSPHATE SODIUM\THIA
  4. CELEBREX [Concomitant]
     Active Substance: CELECOXIB
  5. COENZYME Q10 [Concomitant]
     Active Substance: DIETARY SUPPLEMENT\UBIDECARENONE
  6. CRESTOR [Concomitant]
     Active Substance: ROSUVASTATIN CALCIUM
  7. diltazem [Concomitant]
  8. ELIQUIS [Concomitant]
     Active Substance: APIXABAN
  9. ENALAPRIL [Concomitant]
     Active Substance: ENALAPRIL
  10. FLAXSEED [Concomitant]
     Active Substance: FLAX SEED
  11. GARLIC [Concomitant]
     Active Substance: GARLIC
  12. MAGNESIUM [Concomitant]
     Active Substance: MAGNESIUM
  13. MONTELUKAST [Concomitant]
     Active Substance: MONTELUKAST SODIUM
  14. VITAMINS [Concomitant]
     Active Substance: VITAMINS
  15. OMEGA-3 FATTY ACIDS [Concomitant]
     Active Substance: OMEGA-3 FATTY ACIDS
  16. OMEPRAZOLE [Concomitant]
     Active Substance: OMEPRAZOLE
  17. POTASSIUM [Concomitant]
     Active Substance: POTASSIUM
  18. YEAST [Concomitant]
     Active Substance: YEAST
  19. TRAMADOL [Concomitant]
     Active Substance: TRAMADOL
  20. vit d 3 [Concomitant]
  21. ZETIA [Concomitant]
     Active Substance: EZETIMIBE

REACTIONS (1)
  - Atrial fibrillation [None]
